FAERS Safety Report 17965024 (Version 2)
Quarter: 2020Q3

REPORT INFORMATION
  Report Type: Report from Study
  Country: CO (occurrence: CO)
  Receive Date: 20200630
  Receipt Date: 20200729
  Transmission Date: 20201103
  Serious: Yes (Hospitalization, Other)
  Sender: FDA-Public Use
  Company Number: PHHY2018CO028698

PATIENT
  Age: 18 Year
  Sex: Male
  Weight: 95 kg

DRUGS (3)
  1. REVOLADE [Suspect]
     Active Substance: ELTROMBOPAG
     Indication: THROMBOCYTOPENIC PURPURA
     Dosage: 50 MG, QD
     Route: 048
     Dates: start: 20170307
  2. REVOLADE [Suspect]
     Active Substance: ELTROMBOPAG
     Dosage: 50 MG, QD
     Route: 048
     Dates: start: 20180216
  3. KIOVIG [Suspect]
     Active Substance: HUMAN IMMUNOGLOBULIN G
     Indication: THROMBOCYTOPENIC PURPURA
     Dosage: UNK
     Route: 065
     Dates: end: 20180215

REACTIONS (10)
  - Dizziness [Unknown]
  - Limb injury [Unknown]
  - Fall [Unknown]
  - Photophobia [Unknown]
  - Platelet count decreased [Recovering/Resolving]
  - Seizure [Unknown]
  - Ligament sprain [Unknown]
  - Drug ineffective [Unknown]
  - Haematoma [Recovering/Resolving]
  - Product use issue [Unknown]

NARRATIVE: CASE EVENT DATE: 20200720
